FAERS Safety Report 4422863-6 (Version None)
Quarter: 2004Q3

REPORT INFORMATION
  Report Type: 
  Country: None (occurrence: None)
  Receive Date: 20040804
  Receipt Date: 20040722
  Transmission Date: 20050211
  Serious: Yes (Death)
  Sender: FDA-Public Use
  Company Number: T01-USA-01708-01

PATIENT
  Sex: Female
  Weight: 0.87 kg

DRUGS (17)
  1. INFASURF PRESERVATIVE FREE [Suspect]
     Indication: NEONATAL RESPIRATORY DISTRESS SYNDROME
  2. SURVANTA [Suspect]
     Indication: NEONATAL RESPIRATORY DISTRESS SYNDROME
     Dosage: 1 ONCE TRACH
     Dates: start: 20010824, end: 20010824
  3. AMPICILLIN [Concomitant]
  4. AQUAPHOR [Concomitant]
  5. HEPARIN [Concomitant]
  6. CALCIUM GLUCONATE [Concomitant]
  7. CEFOTAXIME SODIUM [Concomitant]
  8. HUMULIN REGULAR (INSULIN REGULAR) [Concomitant]
  9. ERYTHROMYCIN [Concomitant]
  10. GENTAMYCIN SULFATE [Concomitant]
  11. INDOCIN [Concomitant]
  12. MIDAZOLAM [Concomitant]
  13. DOPAMINE HCL [Concomitant]
  14. SODIUM BICARBONATE [Concomitant]
  15. VECURONIUM BROMIDE [Concomitant]
  16. VITAMIN K TAB [Concomitant]
  17. ATROPINE [Concomitant]

REACTIONS (17)
  - ARRHYTHMIA [None]
  - BASE EXCESS NEGATIVE [None]
  - BLOOD PH DECREASED [None]
  - BLOOD PRESSURE DECREASED [None]
  - BRADYCARDIA [None]
  - CARDIAC ARREST [None]
  - CATHETER SITE HAEMORRHAGE [None]
  - ECCHYMOSIS [None]
  - GENERAL PHYSICAL HEALTH DETERIORATION [None]
  - HAEMATOCRIT DECREASED [None]
  - HAEMOGLOBIN DECREASED [None]
  - HYPERKALAEMIA [None]
  - INTRAVENTRICULAR HAEMORRHAGE [None]
  - NEONATAL DISORDER [None]
  - OXYGEN SATURATION DECREASED [None]
  - PETECHIAE [None]
  - PULMONARY HAEMORRHAGE [None]
